FAERS Safety Report 7706668-6 (Version None)
Quarter: 2011Q3

REPORT INFORMATION
  Report Type: 
  Country: None (occurrence: None)
  Receive Date: 20110824
  Receipt Date: 20110428
  Transmission Date: 20111222
  Serious: No
  Sender: FDA-Public Use
  Company Number: US-GLAXOSMITHKLINE-A0924917A

PATIENT

DRUGS (1)
  1. ARZERRA [Suspect]

REACTIONS (2)
  - BLOOD CREATININE ABNORMAL [None]
  - RENAL DISORDER [None]
